FAERS Safety Report 6699503-9 (Version None)
Quarter: 2010Q2

REPORT INFORMATION
  Report Type: 
  Country: None (occurrence: None)
  Receive Date: 20100427
  Receipt Date: 20100427
  Transmission Date: 20101027
  Serious: Yes (Other)
  Sender: FDA-Public Use
  Company Number: None

PATIENT
  Age: 39 Year
  Sex: Female
  Weight: 103.4201 kg

DRUGS (1)
  1. PHENTERMINE [Suspect]
     Indication: OBESITY
     Dosage: 1 DAILY PO
     Route: 048
     Dates: start: 20100420, end: 20100422

REACTIONS (2)
  - HEADACHE [None]
  - HYPERTENSION [None]
